FAERS Safety Report 5654848-6 (Version None)
Quarter: 2008Q1

REPORT INFORMATION
  Report Type: 
  Country: None (occurrence: None)
  Receive Date: 20080307
  Receipt Date: 20070829
  Transmission Date: 20080703
  Serious: No
  Sender: FDA-Public Use
  Company Number: A0669201A

PATIENT
  Age: 70 Year
  Sex: Male

DRUGS (8)
  1. REQUIP [Suspect]
     Indication: PARKINSON'S DISEASE
     Dosage: 2.5MG THREE TIMES PER DAY
     Route: 048
     Dates: start: 20070621
  2. SODIUM [Concomitant]
  3. FISH OILS [Concomitant]
  4. MULTI-VITAMIN [Concomitant]
  5. VITAMIN B [Concomitant]
  6. ZOCOR [Concomitant]
  7. KLONOPIN [Concomitant]
  8. FIBER [Concomitant]

REACTIONS (4)
  - CONSTIPATION [None]
  - DRUG INEFFECTIVE [None]
  - MYALGIA [None]
  - SOMNOLENCE [None]
